FAERS Safety Report 20407350 (Version 1)
Quarter: 2022Q1

REPORT INFORMATION
  Report Type: Spontaneous
  Country: JP (occurrence: JP)
  Receive Date: 20220131
  Receipt Date: 20220131
  Transmission Date: 20220423
  Serious: Yes (Life-Threatening, Hospitalization, Other)
  Sender: FDA-Public Use
  Company Number: JP-PFIZER INC-202200144492

PATIENT
  Age: 7 Decade
  Sex: Female

DRUGS (1)
  1. RHEUMATREX [Suspect]
     Active Substance: METHOTREXATE SODIUM
     Indication: Rheumatoid arthritis
     Dosage: 2 MG, 3X/DAY
     Route: 048

REACTIONS (7)
  - Toxicity to various agents [Not Recovered/Not Resolved]
  - Accidental overdose [Not Recovered/Not Resolved]
  - Pancytopenia [Not Recovered/Not Resolved]
  - Infection [Not Recovered/Not Resolved]
  - Platelet count decreased [Not Recovered/Not Resolved]
  - Mouth haemorrhage [Not Recovered/Not Resolved]
  - Asphyxia [Not Recovered/Not Resolved]

NARRATIVE: CASE EVENT DATE: 20220101
